FAERS Safety Report 18551368 (Version 3)
Quarter: 2021Q3

REPORT INFORMATION
  Report Type: Report from Study
  Country: AR (occurrence: AR)
  Receive Date: 20201126
  Receipt Date: 20210827
  Transmission Date: 20211014
  Serious: Yes (Life-Threatening, Hospitalization, Other)
  Sender: FDA-Public Use
  Company Number: AR-TAKEDA-2020TUS052713

PATIENT
  Age: 3 Year
  Sex: Male

DRUGS (6)
  1. HUMAN COAGULATION FACTOR VIII (RECOMBINANT) UNSPECIFIED [Suspect]
     Active Substance: ANTIHEMOPHILIC FACTOR, HUMAN RECOMBINANT
     Indication: HAEMOPHILIA
     Dosage: 500 INTERNATIONAL UNIT, QUARTERLY
     Route: 050
     Dates: start: 20190104
  2. HUMAN COAGULATION FACTOR VIII (RECOMBINANT) UNSPECIFIED [Suspect]
     Active Substance: ANTIHEMOPHILIC FACTOR, HUMAN RECOMBINANT
     Dosage: 500 INTERNATIONAL UNIT, 3/WEEK (PROPHYLAXIS)
     Route: 042
     Dates: start: 20190104
  3. HUMAN COAGULATION FACTOR VIII (RECOMBINANT) UNSPECIFIED [Suspect]
     Active Substance: ANTIHEMOPHILIC FACTOR, HUMAN RECOMBINANT
     Indication: HAEMOPHILIA
     Dosage: 500 INTERNATIONAL UNIT, QUARTERLY
     Route: 050
     Dates: start: 20190104
  4. HUMAN COAGULATION FACTOR VIII (RECOMBINANT) UNSPECIFIED [Suspect]
     Active Substance: ANTIHEMOPHILIC FACTOR, HUMAN RECOMBINANT
     Dosage: 500 INTERNATIONAL UNIT, 3/WEEK (PROPHYLAXIS)
     Route: 042
     Dates: start: 20190104
  5. HUMAN COAGULATION FACTOR VIII (RECOMBINANT) UNSPECIFIED [Suspect]
     Active Substance: ANTIHEMOPHILIC FACTOR, HUMAN RECOMBINANT
     Indication: HAEMOPHILIA
     Dosage: 500 INTERNATIONAL UNIT, QUARTERLY
     Route: 050
     Dates: start: 20190104
  6. HUMAN COAGULATION FACTOR VIII (RECOMBINANT) UNSPECIFIED [Suspect]
     Active Substance: ANTIHEMOPHILIC FACTOR, HUMAN RECOMBINANT
     Dosage: 500 INTERNATIONAL UNIT, 3/WEEK (PROPHYLAXIS)
     Route: 042
     Dates: start: 20190104

REACTIONS (6)
  - Face injury [Recovered/Resolved]
  - Fall [Recovered/Resolved]
  - Head injury [Recovered/Resolved]
  - Hydrocephalus [Unknown]
  - Cerebral haemorrhage [Recovered/Resolved]
  - Ventriculo-peritoneal shunt [Unknown]

NARRATIVE: CASE EVENT DATE: 20201212
